FAERS Safety Report 26014431 (Version 1)
Quarter: 2025Q4

REPORT INFORMATION
  Report Type: Spontaneous
  Country: US (occurrence: US)
  Receive Date: 20251108
  Receipt Date: 20251108
  Transmission Date: 20260117
  Serious: No
  Sender: SANOFI AVENTIS
  Company Number: US-SA-2025SA325256

PATIENT
  Age: 53 Year
  Sex: Male
  Weight: 90.71 kg

DRUGS (7)
  1. DUPIXENT [Suspect]
     Active Substance: DUPILUMAB
     Indication: Nasal polyps
     Dosage: 300 MG: QOW
     Route: 058
  2. DUPIXENT [Suspect]
     Active Substance: DUPILUMAB
     Indication: Sinusitis
  3. VIAGRA [Concomitant]
     Active Substance: SILDENAFIL CITRATE
  4. SODIUM SULFACETAMIDE + SULFUR [Concomitant]
  5. EMROSI [Concomitant]
     Active Substance: MINOCYCLINE HYDROCHLORIDE
  6. DOXYCYCLINE HYCLATE [Concomitant]
     Active Substance: DOXYCYCLINE HYCLATE
  7. NUCALA [Concomitant]
     Active Substance: MEPOLIZUMAB

REACTIONS (12)
  - Hypoaesthesia [Recovering/Resolving]
  - Condition aggravated [Recovering/Resolving]
  - Paraesthesia oral [Recovering/Resolving]
  - Condition aggravated [Recovering/Resolving]
  - Gastrointestinal disorder [Recovering/Resolving]
  - Condition aggravated [Recovering/Resolving]
  - Diarrhoea [Recovering/Resolving]
  - Rash [Recovering/Resolving]
  - Rosacea [Recovering/Resolving]
  - Back pain [Recovering/Resolving]
  - Arthralgia [Recovering/Resolving]
  - Product use in unapproved indication [Unknown]

NARRATIVE: CASE EVENT DATE: 20250101
